FAERS Safety Report 19526015 (Version 2)
Quarter: 2021Q3

REPORT INFORMATION
  Report Type: Report from Study
  Country: None (occurrence: US)
  Receive Date: 20210713
  Receipt Date: 20210720
  Transmission Date: 20211014
  Serious: Yes (Other)
  Sender: FDA-Public Use
  Company Number: US-ABBVIE-21K-163-3984172-00

PATIENT
  Sex: Male
  Weight: 90.8 kg

DRUGS (1)
  1. SKYRIZI [Suspect]
     Active Substance: RISANKIZUMAB-RZAA
     Indication: PSORIASIS
     Dosage: 75 MG / 0.83 ML,  AT WEEK 4 THEN EVERY 12 WEEKS
     Route: 058
     Dates: start: 202101

REACTIONS (6)
  - Skin fissures [Unknown]
  - Dry skin [Recovered/Resolved]
  - Pain [Recovered/Resolved]
  - Self-injurious ideation [Recovered/Resolved]
  - Skin haemorrhage [Recovered/Resolved]
  - Insomnia [Recovered/Resolved]

NARRATIVE: CASE EVENT DATE: 2021
